FAERS Safety Report 8610027 (Version 9)
Quarter: 2015Q2

REPORT INFORMATION
  Report Type: Spontaneous
  Country: US (occurrence: US)
  Receive Date: 20120612
  Receipt Date: 20150408
  Transmission Date: 20150821
  Serious: Yes (Hospitalization, Other)
  Sender: FDA-Public Use
  Company Number: US-SANOFI-AVENTIS-2011SA047902

PATIENT
  Age: 67 Year
  Sex: Male
  Weight: 75 kg

DRUGS (19)
  1. PLAVIX [Suspect]
     Active Substance: CLOPIDOGREL BISULFATE
     Indication: CORONARY ARTERY DISEASE
     Route: 048
     Dates: start: 20080704, end: 20101230
  2. VICODIN [Concomitant]
     Active Substance: ACETAMINOPHEN\HYDROCODONE BITARTRATE
     Dosage: 7.5-500 AND 5-500, 1 BID
     Route: 048
  3. ATORVASTATIN [Concomitant]
     Active Substance: ATORVASTATIN
     Route: 048
  4. LISINOPRIL AND HYDROCHLOROTHIAZIDE [Concomitant]
     Active Substance: HYDROCHLOROTHIAZIDE\LISINOPRIL
  5. PLAVIX [Suspect]
     Active Substance: CLOPIDOGREL BISULFATE
     Indication: ANGIOPLASTY
     Route: 048
     Dates: start: 20080704, end: 20101230
  6. ASPIRIN. [Suspect]
     Active Substance: ASPIRIN
     Indication: CORONARY ARTERY DISEASE
     Route: 048
  7. PLAVIX [Suspect]
     Active Substance: CLOPIDOGREL BISULFATE
     Indication: MYOCARDIAL INFARCTION
     Route: 048
     Dates: start: 20080704, end: 20101230
  8. LISINOPRIL. [Concomitant]
     Active Substance: LISINOPRIL
  9. SIMVASTATIN. [Concomitant]
     Active Substance: SIMVASTATIN
     Dosage: 40 DAILY
  10. PLAVIX [Suspect]
     Active Substance: CLOPIDOGREL BISULFATE
     Indication: ACUTE CORONARY SYNDROME
     Route: 048
     Dates: start: 20080704, end: 20101230
  11. INDOMETHACIN. [Concomitant]
     Active Substance: INDOMETHACIN
  12. TADALAFIL [Concomitant]
     Active Substance: TADALAFIL
  13. FERROUS SULFATE [Concomitant]
     Active Substance: FERROUS SULFATE\FERROUS SULFATE, DRIED
  14. PLAVIX [Suspect]
     Active Substance: CLOPIDOGREL BISULFATE
     Indication: STENT PLACEMENT
     Route: 048
     Dates: start: 20080704, end: 20101230
  15. METOPROLOL [Concomitant]
     Active Substance: METOPROLOL
  16. NICOTINE. [Concomitant]
     Active Substance: NICOTINE
  17. IBUPROFEN. [Suspect]
     Active Substance: IBUPROFEN
     Route: 048
  18. GLYCERYL TRINITRATE [Concomitant]
     Active Substance: NITROGLYCERIN
     Indication: CHEST PAIN
     Dosage: X 3
     Route: 060
  19. ACETAMINOPHEN W/HYDROCODONE [Concomitant]
     Active Substance: ACETAMINOPHEN\HYDROCODONE
     Indication: PAIN
     Dosage: 5-500 MG TABLET

REACTIONS (16)
  - Haematochezia [Recovered/Resolved]
  - Anaemia [Recovered/Resolved]
  - Helicobacter gastritis [Unknown]
  - Hypertension [Unknown]
  - Gastric ulcer haemorrhage [Recovered/Resolved]
  - Hypotension [Unknown]
  - Dizziness [Recovered/Resolved]
  - Visual impairment [Recovered/Resolved]
  - Haematemesis [Recovered/Resolved]
  - Arteriosclerosis [Unknown]
  - Carotid artery stenosis [Unknown]
  - Coronary artery disease [Unknown]
  - Syncope [Unknown]
  - Acute kidney injury [Unknown]
  - Pyrexia [Recovered/Resolved]
  - Gastric cancer [Recovered/Resolved]

NARRATIVE: CASE EVENT DATE: 2009
